FAERS Safety Report 10381239 (Version 1)
Quarter: 2014Q3

REPORT INFORMATION
  Report Type: Spontaneous
  Country: IE (occurrence: IE)
  Receive Date: 20140813
  Receipt Date: 20140813
  Transmission Date: 20150326
  Serious: Yes (Death)
  Sender: FDA-Public Use
  Company Number: IE-AMGEN-IRLSP2014061258

PATIENT
  Age: 68 Year
  Sex: Male

DRUGS (10)
  1. ORAMORPH SR SUSTAINED RELEASE [Concomitant]
     Active Substance: MORPHINE SULFATE
     Dosage: UNK
  2. SPIRIVA [Concomitant]
     Active Substance: TIOTROPIUM BROMIDE MONOHYDRATE
     Dosage: UNK
  3. NEULASTA [Suspect]
     Active Substance: PEGFILGRASTIM
     Indication: LUNG NEOPLASM MALIGNANT
     Dosage: 6 MG/0.6 ML, POST CHEMO EVERY THREE WEEKS
     Route: 058
     Dates: start: 20130813
  4. DEXAMETHASONE. [Concomitant]
     Active Substance: DEXAMETHASONE
     Dosage: UNK
  5. SALBUTAMOL [Concomitant]
     Active Substance: ALBUTEROL
     Dosage: UNK
  6. ZYDOL                              /00599202/ [Concomitant]
     Dosage: UNK
  7. TAXOL [Concomitant]
     Active Substance: PACLITAXEL
     Indication: LUNG NEOPLASM MALIGNANT
     Dosage: UNK
  8. MST                                /00021210/ [Concomitant]
     Dosage: UNK
  9. ZOTON [Concomitant]
     Active Substance: LANSOPRAZOLE
     Dosage: UNK
  10. CARBOPLATIN. [Concomitant]
     Active Substance: CARBOPLATIN
     Indication: LUNG NEOPLASM MALIGNANT
     Dosage: UNK

REACTIONS (1)
  - Death [Fatal]
